FAERS Safety Report 5568132-2 (Version None)
Quarter: 2007Q4

REPORT INFORMATION
  Report Type: 
  Country: None (occurrence: None)
  Receive Date: 20071218
  Receipt Date: 20071218
  Transmission Date: 20080405
  Serious: No
  Sender: FDA-Public Use
  Company Number: None

PATIENT
  Age: 82 Year
  Sex: Male

DRUGS (3)
  1. WARFARIN SODIUM [Suspect]
     Indication: ATRIAL FIBRILLATION
     Dosage: 5.7MG EVERY DAY PO
     Route: 048
     Dates: start: 20061204
  2. WARFARIN SODIUM [Suspect]
     Indication: MITRAL VALVE DISEASE
     Dosage: 5.7MG EVERY DAY PO
     Route: 048
     Dates: start: 20061204
  3. WARFARIN SODIUM [Suspect]
     Indication: TRANSIENT ISCHAEMIC ATTACK
     Dosage: 5.7MG EVERY DAY PO
     Route: 048
     Dates: start: 20061204

REACTIONS (2)
  - DECREASED APPETITE [None]
  - GASTROINTESTINAL HAEMORRHAGE [None]
